FAERS Safety Report 18286277 (Version 2)
Quarter: 2021Q3

REPORT INFORMATION
  Report Type: Spontaneous
  Country: US (occurrence: US)
  Receive Date: 20200920
  Receipt Date: 20210819
  Transmission Date: 20211014
  Serious: No
  Sender: FDA-Public Use
  Company Number: US-SA-2020SA252003

PATIENT
  Age: 24 Year
  Sex: Female

DRUGS (9)
  1. TRI?LO?SPRINTEC [Concomitant]
     Active Substance: ETHINYL ESTRADIOL\NORGESTIMATE
  2. VITAMIN D [VITAMIN D NOS] [Concomitant]
     Active Substance: VITAMIN D NOS
  3. VASELINE [PARAFFIN] [Concomitant]
     Active Substance: PARAFFIN
  4. XHANCE [Concomitant]
     Active Substance: FLUTICASONE PROPIONATE
  5. PROAIR HFA [Concomitant]
     Active Substance: ALBUTEROL SULFATE
  6. DUPIXENT [Suspect]
     Active Substance: DUPILUMAB
     Indication: ASTHMA
     Dosage: UNK, Q3W
     Route: 058
     Dates: start: 20190910
  7. SYMBICORT [Concomitant]
     Active Substance: BUDESONIDE\FORMOTEROL FUMARATE DIHYDRATE
  8. DUPIXENT [Suspect]
     Active Substance: DUPILUMAB
     Dosage: 300 MG, QOW
     Route: 058
     Dates: start: 202004
  9. SINGULAIR [Concomitant]
     Active Substance: MONTELUKAST SODIUM

REACTIONS (8)
  - Dry eye [Unknown]
  - Adverse drug reaction [Unknown]
  - Product use issue [Unknown]
  - Eyelid skin dryness [Unknown]
  - Erythema [Unknown]
  - Eye pain [Unknown]
  - Periorbital irritation [Unknown]
  - Condition aggravated [Unknown]

NARRATIVE: CASE EVENT DATE: 202008
